FAERS Safety Report 8759470 (Version 2)
Quarter: 2012Q4

REPORT INFORMATION
  Report Type: 
  Country: US (occurrence: US)
  Receive Date: 20120829
  Receipt Date: 20120830
  Transmission Date: 20130627
  Serious: Yes (Hospitalization)
  Sender: FDA-Public Use
  Company Number: US-MERCK SHARP  DOHME D.O.O.-1206USA04911

PATIENT

DRUGS (6)
  1. PRINIVIL [Suspect]
     Indication: HYPERTENSION
     Dosage: 40 mg, qd
     Route: 048
  2. AMLODIPINE [Concomitant]
     Dosage: 10 mg, qd
  3. METOPROLOL [Concomitant]
     Dosage: 50 mg, bid
  4. MINOXIDIL [Concomitant]
     Dosage: 2.5 mg, qd
  5. ALISKIREN [Concomitant]
     Dosage: 150 mg, qd
  6. HYDRALAZINE [Concomitant]
     Dosage: 10 mg, q6h
     Route: 042

REACTIONS (9)
  - Drug ineffective [Unknown]
  - Thrombotic microangiopathy [None]
  - Renal ischaemia [None]
  - Kidney fibrosis [None]
  - Sepsis [None]
  - Pneumonia [None]
  - Mental status changes [None]
  - Cerebral aspergillosis [None]
  - Bronchopulmonary aspergillosis [None]
